FAERS Safety Report 9046553 (Version 1)
Quarter: 2013Q1

REPORT INFORMATION
  Report Type: Spontaneous
  Country: US (occurrence: None)
  Receive Date: 20130128
  Receipt Date: 20130128
  Transmission Date: 20140127
  Serious: Yes (Hospitalization)
  Sender: FDA-Public Use
  Company Number: None

PATIENT
  Age: 41 Year
  Sex: Female
  Weight: 56.7 kg

DRUGS (1)
  1. STROMECTOL [Suspect]
     Indication: LICE INFESTATION
     Dosage: 4TABLETS  ONE DOSE
     Dates: start: 20121203, end: 20121203

REACTIONS (5)
  - Chest pain [None]
  - Dyspnoea [None]
  - Application site swelling [None]
  - Palpitations [None]
  - Respiratory disorder [None]
